FAERS Safety Report 5771926-1 (Version None)
Quarter: 2008Q2

REPORT INFORMATION
  Report Type: 
  Country: None (occurrence: None)
  Receive Date: 20080612
  Receipt Date: 20080612
  Transmission Date: 20081010
  Serious: Yes (Hospitalization)
  Sender: FDA-Public Use
  Company Number: None

PATIENT
  Age: 79 Year
  Sex: Male
  Weight: 99.84 kg

DRUGS (1)
  1. CIPROFLOXACIN HCL [Suspect]
     Indication: SURGERY
     Dosage: 500 MG BID PO
     Route: 048
     Dates: start: 20071204, end: 20071207

REACTIONS (5)
  - ACTIVITIES OF DAILY LIVING IMPAIRED [None]
  - BALANCE DISORDER [None]
  - COORDINATION ABNORMAL [None]
  - ILL-DEFINED DISORDER [None]
  - SENSORY DISTURBANCE [None]
